FAERS Safety Report 16740998 (Version 1)
Quarter: 2019Q3

REPORT INFORMATION
  Report Type: Report from Study
  Country: DE (occurrence: DE)
  Receive Date: 20190826
  Receipt Date: 20190826
  Transmission Date: 20191005
  Serious: Yes (Hospitalization, Other)
  Sender: FDA-Public Use
  Company Number: PHHY2019DE135324

PATIENT
  Age: 58 Year
  Sex: Female
  Weight: 100 kg

DRUGS (4)
  1. GILENYA [Suspect]
     Active Substance: FINGOLIMOD HYDROCHLORIDE
     Indication: MULTIPLE SCLEROSIS
     Dosage: 0.5 MG, QD
     Route: 048
     Dates: start: 20180528, end: 20190806
  2. NOVAMINSULFON [Concomitant]
     Active Substance: METAMIZOLE
     Indication: SCIATICA
  3. AMANTADINE. [Concomitant]
     Active Substance: AMANTADINE HYDROCHLORIDE
     Indication: FATIGUE
     Dosage: 300 OT, UNK
     Route: 065
     Dates: start: 20151213
  4. NOVAMINSULFON [Concomitant]
     Active Substance: METAMIZOLE
     Indication: BACK PAIN
     Dosage: UNK
     Route: 065
     Dates: start: 20180227

REACTIONS (2)
  - Bowen^s disease [Unknown]
  - Squamous cell carcinoma of skin [Unknown]
